FAERS Safety Report 7379972-1 (Version None)
Quarter: 2011Q1

REPORT INFORMATION
  Report Type: 
  Country: None (occurrence: None)
  Receive Date: 20110329
  Receipt Date: 20110324
  Transmission Date: 20110831
  Serious: Yes (Death)
  Sender: FDA-Public Use
  Company Number: PHHY2011US24455

PATIENT
  Sex: Female

DRUGS (9)
  1. LASIX [Concomitant]
  2. PRAVACHOL [Concomitant]
  3. DIOVAN [Suspect]
     Dosage: 80 MG, UNK
  4. PLAVIX [Concomitant]
  5. METOPROLOL [Concomitant]
  6. HYDROXYUREA [Concomitant]
  7. DURAGESIC-100 [Concomitant]
  8. ASPIRIN [Concomitant]
  9. ZOLPIDEM [Concomitant]

REACTIONS (1)
  - DEATH [None]
